FAERS Safety Report 10538098 (Version 1)
Quarter: 2014Q4

REPORT INFORMATION
  Report Type: Spontaneous
  Country: ES (occurrence: ES)
  Receive Date: 20141023
  Receipt Date: 20141023
  Transmission Date: 20150529
  Serious: Yes (Other)
  Sender: FDA-Public Use
  Company Number: ES-ROXANE LABORATORIES, INC.-2014-RO-01612RO

PATIENT
  Age: 60 Year
  Sex: Male

DRUGS (2)
  1. AZATHIOPRINE. [Suspect]
     Active Substance: AZATHIOPRINE
     Indication: CYSTOID MACULAR OEDEMA
     Route: 065
  2. PREDNISONE. [Suspect]
     Active Substance: PREDNISONE
     Indication: CYSTOID MACULAR OEDEMA
     Route: 048

REACTIONS (3)
  - Headache [Unknown]
  - Pyrexia [Unknown]
  - Dizziness [Recovered/Resolved]
